FAERS Safety Report 13355377 (Version 1)
Quarter: 2017Q1

REPORT INFORMATION
  Report Type: Report from Study
  Country: None (occurrence: BE)
  Receive Date: 20170321
  Receipt Date: 20170321
  Transmission Date: 20170429
  Serious: Yes (Hospitalization)
  Sender: FDA-Public Use
  Company Number: BE-BIOVITRUM-2017BE0305

PATIENT
  Age: 26 Year
  Sex: Female

DRUGS (1)
  1. ORFADIN [Suspect]
     Active Substance: NITISINONE
     Indication: TYROSINAEMIA

REACTIONS (4)
  - Sepsis [Unknown]
  - Device related sepsis [Unknown]
  - Acute kidney injury [Recovered/Resolved]
  - Tenosynovitis [Unknown]

NARRATIVE: CASE EVENT DATE: 20161223
